FAERS Safety Report 6225408-3 (Version None)
Quarter: 2009Q2

REPORT INFORMATION
  Report Type: 
  Country: None (occurrence: None)
  Receive Date: 20090612
  Receipt Date: 20090416
  Transmission Date: 20091009
  Serious: No
  Sender: FDA-Public Use
  Company Number: US-ABBOTT-09P-163-0568885-00

PATIENT
  Sex: Female
  Weight: 47.67 kg

DRUGS (6)
  1. HUMIRA [Suspect]
     Indication: JUVENILE ARTHRITIS
     Dates: start: 20080915
  2. SULFASALAZINE [Concomitant]
     Indication: DRUG USE FOR UNKNOWN INDICATION
  3. PREDNISONE [Concomitant]
     Indication: DRUG USE FOR UNKNOWN INDICATION
  4. NSAID'S [Concomitant]
     Indication: DRUG USE FOR UNKNOWN INDICATION
  5. COX2 INHIBITORS [Concomitant]
     Indication: DRUG USE FOR UNKNOWN INDICATION
  6. ANALGESICS [Concomitant]
     Indication: DRUG USE FOR UNKNOWN INDICATION

REACTIONS (4)
  - DRY SKIN [None]
  - PAIN OF SKIN [None]
  - RASH VESICULAR [None]
  - SKIN EXFOLIATION [None]
